FAERS Safety Report 5263514-0 (Version None)
Quarter: 2007Q1

REPORT INFORMATION
  Report Type: 
  Country: None (occurrence: None)
  Receive Date: 20061213
  Receipt Date: 20040108
  Transmission Date: 20070707
  Serious: No
  Sender: FDA-Public Use
  Company Number: 2004UW00336

PATIENT
  Age: 65 Year
  Sex: Female
  Weight: 47.6277 kg

DRUGS (6)
  1. IRESSA [Suspect]
     Indication: NON-SMALL CELL LUNG CANCER
     Dosage: 250 MG QD PO
     Route: 048
  2. VITAMIN CAP [Concomitant]
  3. HOXEY [Concomitant]
  4. ESSIACT [Concomitant]
  5. PAIN MEDS [Concomitant]
  6. CONSTIPATION MEDS [Concomitant]

REACTIONS (1)
  - DRUG INEFFECTIVE [None]
